FAERS Safety Report 4697174-4 (Version None)
Quarter: 2005Q2

REPORT INFORMATION
  Report Type: 
  Country: None (occurrence: None)
  Receive Date: 20050622
  Receipt Date: 20050524
  Transmission Date: 20051028
  Serious: Yes (Other)
  Sender: FDA-Public Use
  Company Number: PHFR2005GB01933

PATIENT
  Age: 70 Year
  Sex: Female
  Weight: 74 kg

DRUGS (3)
  1. DIOVAN [Suspect]
     Indication: HYPERTENSION
     Dosage: 150MG PER DAY
     Route: 048
     Dates: start: 20050225, end: 20050518
  2. ATENOLOL [Concomitant]
     Indication: HYPERTENSION
     Dosage: 50MG/DAY
     Route: 048
     Dates: start: 19941012
  3. BENDROFLUAZIDE [Concomitant]
     Indication: HYPERTENSION
     Route: 048
     Dates: start: 19950927

REACTIONS (1)
  - THROMBOCYTOPENIA [None]
